FAERS Safety Report 7124621-0 (Version None)
Quarter: 2010Q4

REPORT INFORMATION
  Report Type: 
  Country: None (occurrence: None)
  Receive Date: 20101122
  Receipt Date: 20101122
  Transmission Date: 20110411
  Serious: Yes (Other)
  Sender: FDA-Public Use
  Company Number: None

PATIENT
  Sex: Female
  Weight: 68.0396 kg

DRUGS (1)
  1. LATANOPROST [Suspect]
     Indication: INTRAOCULAR PRESSURE INCREASED
     Dosage: 1 DROP DAILY AT BEDTIME OPTHALMIC
     Route: 047
     Dates: start: 20101112, end: 20101114

REACTIONS (2)
  - MUSCLE DISORDER [None]
  - TEMPOROMANDIBULAR JOINT SYNDROME [None]
